FAERS Safety Report 25862853 (Version 2)
Quarter: 2025Q4

REPORT INFORMATION
  Report Type: Report from Study
  Country: US (occurrence: US)
  Receive Date: 20250930
  Receipt Date: 20251010
  Transmission Date: 20260118
  Serious: Yes (Other)
  Sender: ABBVIE
  Company Number: US-ABBVIE-6335402

PATIENT
  Age: 50 Year
  Sex: Male

DRUGS (4)
  1. RINVOQ [Suspect]
     Active Substance: UPADACITINIB
     Indication: Rheumatoid arthritis
     Dosage: FORM STRENGTH: 15 MG
     Route: 048
     Dates: start: 20250502, end: 20250902
  2. RINVOQ [Suspect]
     Active Substance: UPADACITINIB
     Indication: Rheumatoid arthritis
     Dosage: FORM STRENGTH: 15 MG?END DATE 2025
     Route: 048
     Dates: start: 20250430
  3. RINVOQ [Suspect]
     Active Substance: UPADACITINIB
     Indication: Rheumatoid arthritis
     Dosage: FORM STRENGTH: 15 MG
     Route: 048
     Dates: start: 202510
  4. KEVZARA [Concomitant]
     Active Substance: SARILUMAB
     Indication: Product used for unknown indication

REACTIONS (10)
  - Arthralgia [Unknown]
  - Pain in extremity [Recovered/Resolved]
  - Sleep disorder [Unknown]
  - Joint dislocation [Unknown]
  - Arthritis [Unknown]
  - Loss of personal independence in daily activities [Not Recovered/Not Resolved]
  - Pain in extremity [Recovering/Resolving]
  - Arthralgia [Recovering/Resolving]
  - Joint swelling [Unknown]
  - Musculoskeletal stiffness [Unknown]

NARRATIVE: CASE EVENT DATE: 20250101
